FAERS Safety Report 16221915 (Version 2)
Quarter: 2019Q2

REPORT INFORMATION
  Report Type: Spontaneous
  Country: DE (occurrence: DE)
  Receive Date: 20190422
  Receipt Date: 20190611
  Transmission Date: 20190711
  Serious: Yes (Death, Hospitalization, Other)
  Sender: FDA-Public Use
  Company Number: DE-ASTELLAS-2019US016895

PATIENT
  Sex: Male

DRUGS (1)
  1. AMPHOTERICIN B, LIPOSOME [Suspect]
     Active Substance: AMPHOTERICIN B
     Indication: CANDIDA INFECTION
     Dosage: UNK, UNKNOWN FREQ.
     Route: 065
     Dates: start: 20190325

REACTIONS (5)
  - Infection [Unknown]
  - Hepatic artery occlusion [Fatal]
  - Gastric ulcer [Unknown]
  - Acute hepatic failure [Fatal]
  - Immune system disorder [Unknown]

NARRATIVE: CASE EVENT DATE: 2019
